FAERS Safety Report 7540408-9 (Version None)
Quarter: 2011Q2

REPORT INFORMATION
  Report Type: 
  Country: None (occurrence: None)
  Receive Date: 20110610
  Receipt Date: 20110530
  Transmission Date: 20111010
  Serious: Yes (Hospitalization)
  Sender: FDA-Public Use
  Company Number: GR-ELI_LILLY_AND_COMPANY-GR201106000939

PATIENT
  Age: 52 Year
  Sex: Male

DRUGS (1)
  1. GEMZAR [Suspect]
     Indication: ADENOCARCINOMA PANCREAS
     Dosage: 1000 MG/M2, (DAY 1, 8, 15) EVERY 28 DAYS
     Route: 065

REACTIONS (2)
  - NEOPLASM PROGRESSION [None]
  - POLYMYOSITIS [None]
